FAERS Safety Report 16827678 (Version 7)
Quarter: 2021Q3

REPORT INFORMATION
  Report Type: Spontaneous
  Country: US (occurrence: US)
  Receive Date: 20190919
  Receipt Date: 20210910
  Transmission Date: 20211014
  Serious: Yes (Other)
  Sender: FDA-Public Use
  Company Number: US-GILEAD-2019-0428472

PATIENT
  Age: 30 Year
  Sex: Male
  Weight: 90.7 kg

DRUGS (17)
  1. BIKTARVY [Concomitant]
     Active Substance: BICTEGRAVIR SODIUM\EMTRICITABINE\TENOFOVIR ALAFENAMIDE FUMARATE
  2. PANTOPRAZOLE [Concomitant]
     Active Substance: PANTOPRAZOLE
  3. FLONASE [MOMETASONE FUROATE] [Concomitant]
     Active Substance: MOMETASONE FUROATE
  4. TRUVADA [Suspect]
     Active Substance: EMTRICITABINE\TENOFOVIR DISOPROXIL FUMARATE
     Indication: HIV INFECTION
     Dosage: UNK
     Route: 048
     Dates: start: 2009, end: 2010
  5. TRIUMEQ [Suspect]
     Active Substance: ABACAVIR SULFATE\DOLUTEGRAVIR SODIUM\LAMIVUDINE
     Indication: HIV INFECTION
     Dosage: UNK
     Route: 065
     Dates: start: 20170113, end: 201901
  6. GABAPENTIN. [Concomitant]
     Active Substance: GABAPENTIN
  7. LORATADINE. [Concomitant]
     Active Substance: LORATADINE
  8. ONDANSETRON [Concomitant]
     Active Substance: ONDANSETRON
  9. ATRIPLA [Suspect]
     Active Substance: EFAVIRENZ\EMTRICITABINE\TENOFOVIR DISOPROXIL FUMARATE
     Indication: HIV INFECTION
     Dosage: UNK
     Route: 048
     Dates: start: 20101026, end: 2015
  10. TRIUMEQ [Suspect]
     Active Substance: ABACAVIR SULFATE\DOLUTEGRAVIR SODIUM\LAMIVUDINE
     Indication: ACQUIRED IMMUNODEFICIENCY SYNDROME
  11. BACLOFEN. [Concomitant]
     Active Substance: BACLOFEN
  12. ACETAMINOPHEN. [Concomitant]
     Active Substance: ACETAMINOPHEN
  13. TRUVADA [Suspect]
     Active Substance: EMTRICITABINE\TENOFOVIR DISOPROXIL FUMARATE
     Indication: ACQUIRED IMMUNODEFICIENCY SYNDROME
     Dosage: UNK
     Route: 048
     Dates: start: 20090514, end: 200909
  14. GENVOYA [Concomitant]
     Active Substance: COBICISTAT\ELVITEGRAVIR\EMTRICITABINE\TENOFOVIR ALAFENAMIDE FUMARATE
  15. ATRIPLA [Suspect]
     Active Substance: EFAVIRENZ\EMTRICITABINE\TENOFOVIR DISOPROXIL FUMARATE
     Indication: ACQUIRED IMMUNODEFICIENCY SYNDROME
  16. MAALOX [ALUMINIUM HYDROXIDE;MAGNESIUM HYDROXIDE] [Concomitant]
     Active Substance: ALUMINUM HYDROXIDE\MAGNESIUM HYDROXIDE
  17. VITAMIN D3 [Concomitant]
     Active Substance: CHOLECALCIFEROL

REACTIONS (27)
  - Foot fracture [Unknown]
  - Nephrolithiasis [Not Recovered/Not Resolved]
  - Spinal stenosis [Unknown]
  - Depression [Not Recovered/Not Resolved]
  - Stress fracture [Not Recovered/Not Resolved]
  - Intervertebral disc degeneration [Unknown]
  - Arthritis [Unknown]
  - Hypoaesthesia [Not Recovered/Not Resolved]
  - Osteoarthritis [Unknown]
  - Post-traumatic stress disorder [Not Recovered/Not Resolved]
  - Gait disturbance [Not Recovered/Not Resolved]
  - Multiple fractures [Unknown]
  - Emotional distress [Not Recovered/Not Resolved]
  - Anxiety [Not Recovered/Not Resolved]
  - Economic problem [Not Recovered/Not Resolved]
  - Renal failure [Unknown]
  - Spinal osteoarthritis [Unknown]
  - Osteoarthritis [Not Recovered/Not Resolved]
  - Renal pain [Unknown]
  - Pain [Not Recovered/Not Resolved]
  - Pancreatitis [Unknown]
  - Intervertebral disc protrusion [Not Recovered/Not Resolved]
  - Nephropathy [Unknown]
  - Bone density decreased [Unknown]
  - Anhedonia [Not Recovered/Not Resolved]
  - Quality of life decreased [Not Recovered/Not Resolved]
  - Osteonecrosis [Unknown]

NARRATIVE: CASE EVENT DATE: 20090727
